FAERS Safety Report 8694385 (Version 3)
Quarter: 2013Q4

REPORT INFORMATION
  Report Type: Report from Study
  Country: BE (occurrence: BE)
  Receive Date: 20120731
  Receipt Date: 20131017
  Transmission Date: 20140711
  Serious: Yes (Death, Hospitalization)
  Sender: FDA-Public Use
  Company Number: BE-ROCHE-1091659

PATIENT
  Age: 72 Year
  Sex: Female
  Weight: 56.2 kg

DRUGS (15)
  1. BEVACIZUMAB [Suspect]
     Indication: COLON CANCER
     Route: 042
     Dates: start: 20120522, end: 20120704
  2. CAMPTO [Suspect]
     Indication: COLON CANCER
     Route: 042
     Dates: start: 20120522
  3. ELVORINE [Suspect]
     Indication: COLON CANCER
     Route: 042
     Dates: start: 20120522
  4. 5-FU [Suspect]
     Indication: COLON CANCER
     Route: 042
     Dates: start: 20120522
  5. 5-FU [Suspect]
     Route: 042
     Dates: start: 20120522
  6. PANTOMED (BELGIUM) [Concomitant]
     Indication: PROPHYLAXIS
     Route: 048
  7. ALDACTONE (BELGIUM) [Concomitant]
     Indication: OEDEMA
     Route: 048
  8. INNOHEP [Concomitant]
     Indication: PULMONARY EMBOLISM
     Route: 058
     Dates: start: 20120704
  9. MEDROL [Concomitant]
     Indication: OEDEMA
     Route: 048
  10. TRADONAL [Concomitant]
     Indication: PAIN
     Route: 048
  11. PARACETAMOL [Concomitant]
     Indication: PAIN
     Route: 042
  12. MORPHINE [Concomitant]
     Indication: PAIN
     Route: 065
  13. MERONEM [Concomitant]
     Indication: LARGE INTESTINE PERFORATION
     Route: 042
     Dates: start: 20120722
  14. SANDOSTATINE [Concomitant]
     Route: 042
     Dates: start: 20120722
  15. ARANESP [Concomitant]
     Route: 058
     Dates: start: 20120620, end: 20120620

REACTIONS (6)
  - Pulmonary embolism [Unknown]
  - Asthenia [Fatal]
  - Decreased appetite [Fatal]
  - Fatigue [Fatal]
  - Large intestine perforation [Fatal]
  - Oedema [Fatal]
